FAERS Safety Report 10425594 (Version 1)
Quarter: 2014Q3

REPORT INFORMATION
  Report Type: Spontaneous
  Country: US (occurrence: US)
  Receive Date: 20140902
  Receipt Date: 20140902
  Transmission Date: 20150326
  Serious: Yes (Other)
  Sender: FDA-Public Use
  Company Number: US-AMGEN INC.-USASP2014066392

PATIENT
  Age: 57 Year
  Sex: Female

DRUGS (1)
  1. ENBREL [Suspect]
     Active Substance: ETANERCEPT
     Indication: RHEUMATOID ARTHRITIS
     Dosage: 50 MG, QWK
     Route: 065
     Dates: start: 20090815

REACTIONS (7)
  - Pruritus [Not Recovered/Not Resolved]
  - Skin mass [Not Recovered/Not Resolved]
  - Tuberculosis [Unknown]
  - Skin disorder [Not Recovered/Not Resolved]
  - Crepitations [Not Recovered/Not Resolved]
  - Nausea [Recovered/Resolved]
  - Skin discolouration [Not Recovered/Not Resolved]

NARRATIVE: CASE EVENT DATE: 201405
